FAERS Safety Report 9299415 (Version 2)
Quarter: 2014Q2

REPORT INFORMATION
  Report Type: Spontaneous
  Country: IT (occurrence: IT)
  Receive Date: 20130520
  Receipt Date: 20140404
  Transmission Date: 20141212
  Serious: Yes (Hospitalization, Other)
  Sender: FDA-Public Use
  Company Number: IT-BRISTOL-MYERS SQUIBB COMPANY-18883157

PATIENT
  Age: 2 Year
  Sex: Male
  Weight: 15 kg

DRUGS (3)
  1. COUMADIN TABS 5 MG [Suspect]
     Route: 048
     Dates: start: 20120513
  2. GLIBOMET [Suspect]
     Route: 048
     Dates: start: 20120513
  3. LASIX [Suspect]
     Dosage: FORMULATION-LASIX 25 MG TABS
     Route: 048
     Dates: start: 20120513

REACTIONS (4)
  - Transaminases increased [Recovered/Resolved]
  - Bundle branch block right [Unknown]
  - Accidental exposure to product by child [Unknown]
  - Sinus tachycardia [Unknown]
